FAERS Safety Report 6050562-6 (Version None)
Quarter: 2009Q1

REPORT INFORMATION
  Report Type: 
  Country: None (occurrence: None)
  Receive Date: 20090121
  Receipt Date: 20090106
  Transmission Date: 20090719
  Serious: Yes (Death)
  Sender: FDA-Public Use
  Company Number: PAR_02657_2009

PATIENT
  Age: 27 Year
  Sex: Male

DRUGS (4)
  1. CLONAZEPAM [Suspect]
     Indication: DRUG USE FOR UNKNOWN INDICATION
     Dosage: DF
  2. ZOLPIDEM [Suspect]
     Indication: DRUG USE FOR UNKNOWN INDICATION
     Dosage: DF
  3. HEROIN [Suspect]
     Indication: DRUG USE FOR UNKNOWN INDICATION
     Dosage: DF
  4. PAROXETINE HCL [Suspect]
     Indication: DRUG USE FOR UNKNOWN INDICATION
     Dosage: DF

REACTIONS (4)
  - CARDIAC ARREST [None]
  - INTENTIONAL DRUG MISUSE [None]
  - POISONING [None]
  - RESPIRATORY ARREST [None]
